FAERS Safety Report 23708920 (Version 1)
Quarter: 2024Q2

REPORT INFORMATION
  Report Type: Spontaneous
  Country: US (occurrence: US)
  Receive Date: 20240404
  Receipt Date: 20240404
  Transmission Date: 20240715
  Serious: Yes (Other)
  Sender: FDA-Public Use
  Company Number: US-SANDOZ-SDZ2024US034485

PATIENT
  Age: 44 Year
  Sex: Female

DRUGS (1)
  1. PREDNISONE [Suspect]
     Active Substance: PREDNISONE
     Indication: Systemic lupus erythematosus
     Route: 065

REACTIONS (3)
  - Osteomyelitis [Recovered/Resolved]
  - Atypical mycobacterial infection [Unknown]
  - Spinal cord compression [Unknown]
